FAERS Safety Report 10389372 (Version 5)
Quarter: 2015Q1

REPORT INFORMATION
  Report Type: Spontaneous
  Country: IL (occurrence: IL)
  Receive Date: 20140818
  Receipt Date: 20150224
  Transmission Date: 20150720
  Serious: Yes (Other)
  Sender: FDA-Public Use
  Company Number: IL-PFIZER INC-2014217260

PATIENT
  Age: 69 Year
  Sex: Male

DRUGS (6)
  1. TARGIN [Concomitant]
     Active Substance: NALOXONE HYDROCHLORIDE\OXYCODONE HYDROCHLORIDE
     Dosage: UNK
  2. PERCOCET [Concomitant]
     Active Substance: ACETAMINOPHEN\OXYCODONE HYDROCHLORIDE
     Dosage: UNK
  3. VICTOZA [Concomitant]
     Active Substance: LIRAGLUTIDE
     Dosage: UNK
  4. PREDNISONE. [Concomitant]
     Active Substance: PREDNISONE
     Dosage: UNK
  5. SUTENT [Suspect]
     Active Substance: SUNITINIB MALATE
     Indication: RENAL CELL CARCINOMA
     Dosage: 50 MG, 1X/DAY, CYCLE 2, CUMULATIVE DOSE ABOUT 2000 MG AS OF 13AUG2014
     Route: 048
     Dates: start: 20140622, end: 20140821
  6. NORMALAX [Concomitant]
     Dosage: UNK

REACTIONS (14)
  - Weight decreased [Unknown]
  - Dyspnoea [Recovering/Resolving]
  - Malaise [Unknown]
  - Chest pain [Not Recovered/Not Resolved]
  - Dizziness [Not Recovered/Not Resolved]
  - Productive cough [Recovering/Resolving]
  - Musculoskeletal stiffness [Unknown]
  - Musculoskeletal chest pain [Not Recovered/Not Resolved]
  - Back pain [Not Recovered/Not Resolved]
  - Haemoptysis [Recovering/Resolving]
  - Pain in extremity [Not Recovered/Not Resolved]
  - Neck pain [Unknown]
  - Fatigue [Not Recovered/Not Resolved]
  - Decreased appetite [Not Recovered/Not Resolved]

NARRATIVE: CASE EVENT DATE: 2014
